FAERS Safety Report 7640123-7 (Version None)
Quarter: 2011Q3

REPORT INFORMATION
  Report Type: 
  Country: None (occurrence: None)
  Receive Date: 20110728
  Receipt Date: 20110708
  Transmission Date: 20111222
  Serious: No
  Sender: FDA-Public Use
  Company Number: US-BAYER-2011-060388

PATIENT
  Age: 85 Year
  Sex: Female
  Weight: 56.689 kg

DRUGS (3)
  1. SIMVASTATIN [Concomitant]
  2. ALEVE (CAPLET) [Suspect]
     Indication: ARTHRITIS
     Dosage: 2 DF, QD
     Dates: start: 20110704
  3. ALEVE (CAPLET) [Concomitant]
     Dosage: UNK
     Route: 048
     Dates: start: 20100101

REACTIONS (2)
  - HICCUPS [None]
  - BLOOD PRESSURE INCREASED [None]
